FAERS Safety Report 23103058 (Version 4)
Quarter: 2024Q1

REPORT INFORMATION
  Report Type: Report from Study
  Country: US (occurrence: US)
  Receive Date: 20231025
  Receipt Date: 20240213
  Transmission Date: 20240410
  Serious: No
  Sender: FDA-Public Use
  Company Number: US-LUNDBECK-DKLU3068232

PATIENT
  Age: 48 Year
  Sex: Female

DRUGS (2)
  1. VYEPTI [Suspect]
     Active Substance: EPTINEZUMAB-JJMR
     Indication: Migraine
     Route: 041
     Dates: start: 20230919
  2. UBRELVY [Concomitant]
     Active Substance: UBROGEPANT
     Indication: Product used for unknown indication
     Route: 065

REACTIONS (4)
  - Drug ineffective [Recovering/Resolving]
  - Headache [Recovered/Resolved]
  - Drug effect less than expected [Unknown]
  - Therapeutic response shortened [Unknown]

NARRATIVE: CASE EVENT DATE: 20230901
